FAERS Safety Report 4976898-5 (Version None)
Quarter: 2006Q2

REPORT INFORMATION
  Report Type: 
  Country: None (occurrence: None)
  Receive Date: 20060413
  Receipt Date: 20060404
  Transmission Date: 20061013
  Serious: Yes (Other)
  Sender: FDA-Public Use
  Company Number: 2006047766

PATIENT
  Age: 19 Year
  Sex: Female
  Weight: 58.0604 kg

DRUGS (2)
  1. ZOLOFT [Suspect]
     Indication: ANXIETY
     Dosage: 50 MG (50 MG, 1 IN 1 D);
     Dates: start: 20060331, end: 20060331
  2. ZOLOFT [Suspect]
     Indication: DEPRESSION
     Dosage: 50 MG (50 MG, 1 IN 1 D);
     Dates: start: 20060331, end: 20060331

REACTIONS (6)
  - ABDOMINAL PAIN UPPER [None]
  - CONTUSION [None]
  - LOSS OF CONSCIOUSNESS [None]
  - NAUSEA [None]
  - ROAD TRAFFIC ACCIDENT [None]
  - VOMITING [None]
